FAERS Safety Report 5964288-8 (Version None)
Quarter: 2008Q4

REPORT INFORMATION
  Report Type: 
  Country: None (occurrence: None)
  Receive Date: 20081124
  Receipt Date: 20081114
  Transmission Date: 20090506
  Serious: Yes (Other)
  Sender: FDA-Public Use
  Company Number: US-PFIZER INC-2004027645

PATIENT
  Sex: Male
  Weight: 68 kg

DRUGS (8)
  1. VIAGRA [Suspect]
     Indication: ERECTILE DYSFUNCTION
     Route: 048
     Dates: start: 20010101
  2. ALL OTHER THERAPEUTIC PRODUCTS [Concomitant]
  3. VITAMINS [Concomitant]
  4. FOLIC ACID [Concomitant]
  5. VITAMIN B-12 [Concomitant]
  6. COUMADIN [Concomitant]
  7. WARFARIN SODIUM [Concomitant]
  8. ANTIHYPERTENSIVES [Concomitant]

REACTIONS (6)
  - DRUG INEFFECTIVE [None]
  - ERECTILE DYSFUNCTION [None]
  - FLUSHING [None]
  - HEADACHE [None]
  - MYOCARDIAL INFARCTION [None]
  - THROMBOSIS [None]
